FAERS Safety Report 14907386 (Version 1)
Quarter: 2018Q2

REPORT INFORMATION
  Report Type: Report from Study
  Country: None (occurrence: CA)
  Receive Date: 20180517
  Receipt Date: 20180517
  Transmission Date: 20180711
  Serious: Yes (Hospitalization, Other)
  Sender: FDA-Public Use
  Company Number: CA-ABBVIE-18S-028-2357467-00

PATIENT
  Age: 82 Year
  Sex: Male
  Weight: 89 kg

DRUGS (8)
  1. LUPRON DEPOT [Suspect]
     Active Substance: LEUPROLIDE ACETATE
     Indication: PROSTATE CANCER
     Route: 030
     Dates: start: 20150109
  2. HYZAAR [Concomitant]
     Active Substance: HYDROCHLOROTHIAZIDE\LOSARTAN POTASSIUM
     Indication: HYPERTENSION
     Dosage: 50/12.5MG
     Route: 048
     Dates: start: 1995
  3. ASA [Concomitant]
     Active Substance: ASPIRIN
     Indication: PROPHYLAXIS
     Dosage: 3-4 PER WEEK
     Dates: start: 1990
  4. MYCOSTATIN [Concomitant]
     Active Substance: NYSTATIN
     Indication: FUNGAL SKIN INFECTION
     Dates: start: 20150429
  5. XTANDI [Concomitant]
     Active Substance: ENZALUTAMIDE
     Indication: HORMONE-REFRACTORY PROSTATE CANCER
  6. CALCIUM/VITMAIN D [Concomitant]
     Indication: PROPHYLAXIS
     Dosage: 600UI/200UI
     Route: 050
     Dates: start: 20150429
  7. TYLENOL [Concomitant]
     Active Substance: ACETAMINOPHEN
     Indication: PRODUCT USED FOR UNKNOWN INDICATION
     Dosage: AT BEDTIME
     Route: 048
     Dates: start: 2005
  8. VALARIAN [Concomitant]
     Indication: INSOMNIA
     Dosage: AT BEDTIME
     Route: 048

REACTIONS (8)
  - Decreased appetite [Recovered/Resolved]
  - Iridotomy [Unknown]
  - Cystitis [Recovered/Resolved]
  - Fatigue [Not Recovered/Not Resolved]
  - Hydronephrosis [Recovering/Resolving]
  - Cataract [Recovered/Resolved]
  - Testicular pain [Recovered/Resolved]
  - Hot flush [Not Recovered/Not Resolved]

NARRATIVE: CASE EVENT DATE: 20150130
